FAERS Safety Report 19038249 (Version 2)
Quarter: 2021Q1

REPORT INFORMATION
  Report Type: Spontaneous
  Country: US (occurrence: US)
  Receive Date: 20210322
  Receipt Date: 20210322
  Transmission Date: 20210420
  Serious: No
  Sender: FDA-Public Use
  Company Number: US-GALDERMA-US2020050319

PATIENT
  Age: 33 Year
  Sex: Female

DRUGS (4)
  1. PROACTIV MD DEEP CLEANSING FACE WASH [Concomitant]
     Active Substance: COSMETICS
     Indication: ACNE
     Route: 061
     Dates: start: 20201102, end: 20201120
  2. PROACTIV DAILY OIL CONTROL [Concomitant]
     Indication: ACNE
     Route: 061
     Dates: start: 20201102, end: 20201120
  3. PROACTIV MD BALANCING TONER [Concomitant]
     Active Substance: COSMETICS
     Indication: ACNE
     Route: 061
     Dates: start: 20201102, end: 20201120
  4. PROACTIV MD ADAPALENE ACNE TREATMENT [Suspect]
     Active Substance: ADAPALENE
     Indication: ACNE
     Dosage: 0.1%
     Route: 061
     Dates: start: 20201102, end: 20201120

REACTIONS (9)
  - Dry skin [Not Recovered/Not Resolved]
  - Skin exfoliation [Not Recovered/Not Resolved]
  - Skin burning sensation [Not Recovered/Not Resolved]
  - Acne [Not Recovered/Not Resolved]
  - Skin hyperpigmentation [Not Recovered/Not Resolved]
  - Erythema [Not Recovered/Not Resolved]
  - Blister [Not Recovered/Not Resolved]
  - Pain of skin [Not Recovered/Not Resolved]
  - Skin irritation [Not Recovered/Not Resolved]

NARRATIVE: CASE EVENT DATE: 202011
